FAERS Safety Report 5828033-9 (Version None)
Quarter: 2008Q3

REPORT INFORMATION
  Report Type: 
  Country: None (occurrence: None)
  Receive Date: 20080730
  Receipt Date: 20070808
  Transmission Date: 20090109
  Serious: No
  Sender: FDA-Public Use
  Company Number: A0668933A

PATIENT
  Age: 66 Year
  Sex: Female

DRUGS (3)
  1. RANITIDINE HCL [Suspect]
     Dosage: 300MG PER DAY
     Route: 048
     Dates: start: 20070301
  2. ADVIL [Concomitant]
  3. ASPIRIN [Concomitant]

REACTIONS (2)
  - MYALGIA [None]
  - WHITE BLOOD CELL COUNT DECREASED [None]
